FAERS Safety Report 7805762-9 (Version None)
Quarter: 2011Q4

REPORT INFORMATION
  Report Type: 
  Country: None (occurrence: None)
  Receive Date: 20111011
  Receipt Date: 20110929
  Transmission Date: 20120403
  Serious: No
  Sender: FDA-Public Use
  Company Number: US-BIOGENIDEC-2011BI037629

PATIENT
  Sex: Female

DRUGS (4)
  1. TYSABRI [Suspect]
     Indication: MULTIPLE SCLEROSIS
     Route: 042
     Dates: start: 20110408
  2. ADVIL PM [Concomitant]
  3. NAPROXEN [Concomitant]
     Indication: NEUROPATHY PERIPHERAL
     Dates: start: 20100101
  4. AVONEX [Concomitant]
     Indication: MULTIPLE SCLEROSIS
     Route: 030

REACTIONS (3)
  - MUSCLE SPASMS [None]
  - PAIN [None]
  - ABDOMINAL PAIN UPPER [None]
